FAERS Safety Report 9119018 (Version 1)
Quarter: 2013Q1

REPORT INFORMATION
  Report Type: Spontaneous
  Country: JP (occurrence: JP)
  Receive Date: 20130226
  Receipt Date: 20130226
  Transmission Date: 20140127
  Serious: Yes (Other)
  Sender: FDA-Public Use
  Company Number: PHHY2011JP23446

PATIENT
  Age: 67 Year
  Sex: Male

DRUGS (14)
  1. AFINITOR [Suspect]
     Indication: METASTATIC RENAL CELL CARCINOMA
     Dosage: 10 MG/DAY
     Route: 048
     Dates: start: 20100809, end: 20100901
  2. AFINITOR [Suspect]
     Dosage: 5 MG/DAY
     Route: 048
     Dates: start: 20100917, end: 20101001
  3. AFINITOR [Suspect]
     Dosage: 10 MG/DAY
     Route: 048
     Dates: start: 20101002
  4. AFINITOR [Suspect]
     Dosage: 5 MG/DAY
     Route: 048
     Dates: start: 20110318, end: 20110506
  5. HARNAL [Concomitant]
     Dosage: 0.2 MG
     Route: 048
  6. DOGMATYL [Concomitant]
     Dosage: 100 MG, DAILY
     Route: 048
  7. GASTER D [Concomitant]
     Dosage: 20 MG, DAILY
     Route: 048
  8. TAMSULOSIN HYDROCHLORIDE [Concomitant]
     Dosage: 0.2 MG
     Route: 048
  9. LOXONIN [Concomitant]
     Indication: METASTATIC RENAL CELL CARCINOMA
     Dosage: 60 MG
     Route: 048
     Dates: start: 20090724, end: 20101125
  10. LOXONIN [Concomitant]
     Dosage: 120 MG
     Route: 048
  11. AZUNOL [Concomitant]
     Dosage: UNK UKN, UNK
     Dates: start: 20100903, end: 20100917
  12. TAKEPRON [Concomitant]
     Dosage: 15 MG
     Route: 048
     Dates: start: 20110318
  13. SUNITINIB MALATE [Concomitant]
     Indication: METASTATIC RENAL CELL CARCINOMA
     Dosage: 50 MG
     Route: 048
     Dates: start: 20090610, end: 20100722
  14. SORAFENIB TOSILATE [Concomitant]
     Indication: METASTATIC RENAL CELL CARCINOMA
     Dosage: 800 MG
     Route: 048
     Dates: start: 20081010, end: 20090609

REACTIONS (6)
  - Anaemia [Not Recovered/Not Resolved]
  - Neoplasm progression [Not Recovered/Not Resolved]
  - Malignant neoplasm progression [Not Recovered/Not Resolved]
  - Stomatitis [Unknown]
  - Cheilitis [Unknown]
  - Gastritis [Unknown]
